FAERS Safety Report 7167001 (Version 4)
Quarter: 2012Q4

REPORT INFORMATION
  Report Type: 
  Country: JP (occurrence: JP)
  Receive Date: 20091104
  Receipt Date: 20121024
  Transmission Date: 20130627
  Serious: Yes (Hospitalization)
  Sender: FDA-Public Use
  Company Number: JP-PFIZER INC-2009291548

PATIENT
  Age: 81 Year
  Sex: Male

DRUGS (4)
  1. ATARAX-P [Suspect]
     Indication: AMNESIA
     Dosage: 1 DF, 1x/day
     Route: 048
     Dates: start: 20090416, end: 20090423
  2. TANDOSPIRONE CITRATE [Concomitant]
     Indication: AMNESIA
     Route: 048
     Dates: start: 20090416
  3. GLUCOSAMINE [Concomitant]
     Route: 048
     Dates: start: 20090423
  4. CHONDROITIN [Concomitant]
     Route: 048
     Dates: start: 20090423

REACTIONS (3)
  - Acute generalised exanthematous pustulosis [Recovered/Resolved]
  - Pyrexia [Recovered/Resolved]
  - Psoriasis [Not Recovered/Not Resolved]
